FAERS Safety Report 13842692 (Version 1)
Quarter: 2017Q3

REPORT INFORMATION
  Report Type: Spontaneous
  Country: GB (occurrence: GB)
  Receive Date: 20170808
  Receipt Date: 20170808
  Transmission Date: 20171127
  Serious: Yes (Other)
  Sender: FDA-Public Use
  Company Number: GB-BAYER-2017-148535

PATIENT
  Age: 67 Year
  Sex: Female

DRUGS (3)
  1. ACETYLSALICYLIC ACID (} 100 MG) [Suspect]
     Active Substance: ASPIRIN
     Indication: CAROTID ARTERY ANEURYSM
     Dosage: 500 MG, UNK
     Route: 042
  2. HEPARIN [Suspect]
     Active Substance: HEPARIN SODIUM
     Indication: PROPHYLAXIS
     Dosage: UNK
  3. ACETYLSALICYLIC ACID (} 100 MG) [Suspect]
     Active Substance: ASPIRIN
     Indication: CAROTID ARTERY ANEURYSM
     Dosage: 75 MG, UNK
     Route: 042

REACTIONS (4)
  - Product use in unapproved indication [None]
  - Off label use [None]
  - Retinal artery occlusion [None]
  - Drug ineffective [None]
